FAERS Safety Report 8416842-1 (Version None)
Quarter: 2012Q2

REPORT INFORMATION
  Report Type: 
  Country: None (occurrence: None)
  Receive Date: 20120530
  Receipt Date: 20120517
  Transmission Date: 20120825
  Serious: Yes (Hospitalization, Disabling)
  Sender: FDA-Public Use
  Company Number: 2012SP026588

PATIENT
  Age: 59 Year
  Sex: Female
  Weight: 79 kg

DRUGS (8)
  1. PEG-INTRON [Suspect]
     Indication: HEPATITIS C
     Dosage: 120 MCG;QW;SC, 100 MCG;QW;SC, 80 MCG;QW;SC
     Route: 058
     Dates: start: 20101217, end: 20110114
  2. PEG-INTRON [Suspect]
     Indication: HEPATITIS C
     Dosage: 120 MCG;QW;SC, 100 MCG;QW;SC, 80 MCG;QW;SC
     Route: 058
     Dates: start: 20110121, end: 20110127
  3. PEG-INTRON [Suspect]
     Indication: HEPATITIS C
     Dosage: 120 MCG;QW;SC, 100 MCG;QW;SC, 80 MCG;QW;SC
     Route: 058
     Dates: start: 20101105, end: 20101210
  4. AMLODIPINE /00972402/ [Concomitant]
  5. REBETOL [Suspect]
     Indication: HEPATITIS C
     Dosage: 400 MG;BID;PO, 200 MG;BID;PO
     Route: 048
     Dates: start: 20101105, end: 20110203
  6. REBETOL [Suspect]
     Indication: HEPATITIS C
     Dosage: 400 MG;BID;PO, 200 MG;BID;PO
     Route: 048
     Dates: start: 20110204, end: 20120128
  7. MIGLITOL [Concomitant]
  8. JUZENTAIHOTO [Concomitant]

REACTIONS (4)
  - SUBARACHNOID HAEMORRHAGE [None]
  - INTRACRANIAL ANEURYSM [None]
  - HYPOAESTHESIA [None]
  - PLATELET COUNT DECREASED [None]
